FAERS Safety Report 6448750-X (Version None)
Quarter: 2009Q4

REPORT INFORMATION
  Report Type: 
  Country: None (occurrence: None)
  Receive Date: 20091120
  Receipt Date: 20090807
  Transmission Date: 20100525
  Serious: No
  Sender: FDA-Public Use
  Company Number: US-KINGPHARMUSA00001-K200900943

PATIENT
  Age: 36 Year
  Sex: Female
  Weight: 68.027 kg

DRUGS (4)
  1. FLECTOR [Suspect]
     Indication: MUSCULOSKELETAL PAIN
     Dosage: 1 PATCH, BID
     Route: 061
     Dates: start: 20090201, end: 20090805
  2. NASONEX [Concomitant]
     Dosage: UNK
     Route: 045
  3. ZYRTEC [Concomitant]
     Dosage: UNK
     Route: 048
  4. ORAL CONTRACEPTIVE NOS [Concomitant]
     Indication: CONTRACEPTION
     Dosage: UNK
     Route: 048

REACTIONS (1)
  - DRUG INEFFECTIVE [None]
